FAERS Safety Report 4905112-1 (Version None)
Quarter: 2006Q1

REPORT INFORMATION
  Report Type: 
  Country: None (occurrence: None)
  Receive Date: 20060208
  Receipt Date: 20051116
  Transmission Date: 20060701
  Serious: No
  Sender: FDA-Public Use
  Company Number: US-GLAXOSMITHKLINE-A0582548A

PATIENT
  Age: 59 Year
  Sex: Female

DRUGS (5)
  1. PAXIL [Suspect]
     Dosage: 10MG PER DAY
     Route: 048
  2. LIPITOR [Concomitant]
  3. FOSAMAX [Concomitant]
  4. ACTONEL [Concomitant]
  5. FLEXERIL [Concomitant]

REACTIONS (4)
  - DIZZINESS [None]
  - DRUG WITHDRAWAL SYNDROME [None]
  - INSOMNIA [None]
  - NAUSEA [None]
